FAERS Safety Report 7777991-4 (Version None)
Quarter: 2011Q3

REPORT INFORMATION
  Report Type: 
  Country: None (occurrence: None)
  Receive Date: 20110926
  Receipt Date: 20110914
  Transmission Date: 20111222
  Serious: No
  Sender: FDA-Public Use
  Company Number: US-BIOGENIDEC-2011BI035451

PATIENT
  Age: 38 Year
  Sex: Male

DRUGS (3)
  1. AVONEX [Suspect]
     Indication: MULTIPLE SCLEROSIS
     Route: 030
     Dates: start: 20110624
  2. AVONEX [Suspect]
     Route: 030
     Dates: start: 20100312
  3. AVONEX [Suspect]
     Route: 030
     Dates: start: 20060801, end: 20091216

REACTIONS (1)
  - MEMORY IMPAIRMENT [None]
